FAERS Safety Report 21626104 (Version 1)
Quarter: 2022Q4

REPORT INFORMATION
  Report Type: Spontaneous
  Country: US (occurrence: None)
  Receive Date: 20221122
  Receipt Date: 20221122
  Transmission Date: 20230112
  Serious: No
  Sender: FDA-Public Use
  Company Number: US-ROCHE-3067588

PATIENT
  Sex: Female
  Weight: 13.620 kg

DRUGS (6)
  1. PULMOZYME [Suspect]
     Active Substance: DORNASE ALFA
     Indication: Dyspnoea
     Dosage: INHALE 1 VIAL (2.5MG TOTAL)
     Route: 055
     Dates: start: 20200304
  2. PREVACID [Concomitant]
     Active Substance: LANSOPRAZOLE
     Route: 048
     Dates: start: 20200303
  3. SODIUM CHLORIDE [Concomitant]
     Active Substance: SODIUM CHLORIDE
     Route: 055
     Dates: start: 20200303
  4. CHILDRENS TYLENOL [Concomitant]
     Active Substance: ACETAMINOPHEN
     Route: 048
     Dates: start: 20200303
  5. DIAZEPAM [Concomitant]
     Active Substance: DIAZEPAM
     Route: 054
     Dates: start: 20200303
  6. ATROVENT [Concomitant]
     Active Substance: IPRATROPIUM BROMIDE
     Route: 055
     Dates: start: 20200303

REACTIONS (2)
  - Off label use [Unknown]
  - No adverse event [Unknown]
